FAERS Safety Report 14999654 (Version 1)
Quarter: 2018Q2

REPORT INFORMATION
  Report Type: Spontaneous
  Country: US (occurrence: US)
  Receive Date: 20180612
  Receipt Date: 20180612
  Transmission Date: 20180711
  Serious: Yes (Other)
  Sender: FDA-Public Use
  Company Number: US-009507513-1806USA002620

PATIENT
  Age: 65 Year
  Sex: Male

DRUGS (3)
  1. CANCIDAS [Suspect]
     Active Substance: CASPOFUNGIN ACETATE
     Indication: ENDOCARDITIS
     Dosage: 50 MG, Q24H
     Route: 042
  2. CANCIDAS [Suspect]
     Active Substance: CASPOFUNGIN ACETATE
     Indication: SYSTEMIC CANDIDA
  3. NOXAFIL [Suspect]
     Active Substance: POSACONAZOLE
     Dosage: 300 MG, Q24H
     Route: 048

REACTIONS (1)
  - Hepatotoxicity [Unknown]
